FAERS Safety Report 9271024 (Version 1)
Quarter: 2013Q2

REPORT INFORMATION
  Report Type: Spontaneous
  Country: FR (occurrence: FR)
  Receive Date: 20130506
  Receipt Date: 20130506
  Transmission Date: 20140414
  Serious: Yes (Life-Threatening, Hospitalization)
  Sender: FDA-Public Use
  Company Number: FR-JNJFOC-20130414149

PATIENT
  Age: 53 Year
  Sex: Female

DRUGS (17)
  1. REMICADE [Suspect]
     Indication: SPONDYLITIS
     Route: 042
     Dates: end: 201112
  2. REMICADE [Suspect]
     Indication: PSORIATIC ARTHROPATHY
     Route: 042
     Dates: end: 201112
  3. CIMZIA [Suspect]
     Indication: SPONDYLITIS
     Route: 065
     Dates: start: 201112
  4. CIMZIA [Suspect]
     Indication: SPONDYLITIS
     Route: 065
     Dates: end: 201212
  5. CIMZIA [Suspect]
     Indication: PSORIATIC ARTHROPATHY
     Route: 065
     Dates: end: 201212
  6. CIMZIA [Suspect]
     Indication: PSORIATIC ARTHROPATHY
     Route: 065
     Dates: start: 201112
  7. ENBREL [Suspect]
     Indication: SPONDYLITIS
     Route: 065
  8. ENBREL [Suspect]
     Indication: PSORIATIC ARTHROPATHY
     Route: 065
  9. HUMIRA [Suspect]
     Indication: SPONDYLITIS
     Route: 065
     Dates: start: 2006, end: 2006
  10. HUMIRA [Suspect]
     Indication: PSORIATIC ARTHROPATHY
     Route: 065
     Dates: start: 2006, end: 2006
  11. METHOTREXATE [Suspect]
     Indication: SPONDYLITIS
     Dosage: 6 DOSAGE FORMS
     Route: 065
     Dates: start: 20130114
  12. METHOTREXATE [Suspect]
     Indication: SPONDYLITIS
     Route: 065
     Dates: start: 1999, end: 201301
  13. METHOTREXATE [Suspect]
     Indication: PSORIATIC ARTHROPATHY
     Route: 065
     Dates: start: 1999, end: 201301
  14. METHOTREXATE [Suspect]
     Indication: PSORIATIC ARTHROPATHY
     Dosage: 6 DOSAGE FORMS
     Route: 065
     Dates: start: 20130114
  15. SPECIAFOLDINE [Concomitant]
     Route: 065
  16. DOLIPRANE [Concomitant]
     Indication: PRODUCT USED FOR UNKNOWN INDICATION
     Route: 065
  17. VOLTARENE [Concomitant]
     Indication: PRODUCT USED FOR UNKNOWN INDICATION
     Route: 065

REACTIONS (2)
  - Lung adenocarcinoma [Not Recovered/Not Resolved]
  - Drug ineffective [Unknown]
